FAERS Safety Report 5597167-9 (Version None)
Quarter: 2008Q1

REPORT INFORMATION
  Report Type: 
  Country: None (occurrence: None)
  Receive Date: 20080121
  Receipt Date: 20080107
  Transmission Date: 20080703
  Serious: Yes (Other)
  Sender: FDA-Public Use
  Company Number: US-WYE-H02100808

PATIENT

DRUGS (4)
  1. RAPAMUNE [Suspect]
     Indication: IMMUNOSUPPRESSANT DRUG THERAPY
     Dosage: 10 MG/DAY BEGINNING ON DAY 4 POST-TRANSPLANT
     Route: 048
  2. RAPAMUNE [Suspect]
     Dosage: 15 MG/DAY ON DAYS 1-3 POST-TRANSPLANT
     Route: 048
  3. ZENAPAX [Concomitant]
     Indication: IMMUNOSUPPRESSANT DRUG THERAPY
     Dosage: 1 MG/KG 24 H BEFORE TRANSPLANT, THEN FOUR ADDIONAL DOSES EVERY 2 WEEKS
     Route: 042
  4. CELLCEPT [Concomitant]
     Indication: IMMUNOSUPPRESSANT DRUG THERAPY
     Route: 048

REACTIONS (2)
  - NEPHRITIS INTERSTITIAL [None]
  - RENAL TUBULAR NECROSIS [None]
